FAERS Safety Report 6763992-1 (Version None)
Quarter: 2010Q2

REPORT INFORMATION
  Report Type: 
  Country: None (occurrence: None)
  Receive Date: 20100610
  Receipt Date: 20100531
  Transmission Date: 20101027
  Serious: Yes (Hospitalization)
  Sender: FDA-Public Use
  Company Number: US-ABBOTT-08P-163-0457182-00

PATIENT
  Sex: Female
  Weight: 48.578 kg

DRUGS (11)
  1. VICODIN [Suspect]
     Indication: DRUG USE FOR UNKNOWN INDICATION
     Dates: start: 20080507
  2. BETASERON [Suspect]
     Indication: RELAPSING-REMITTING MULTIPLE SCLEROSIS
     Dosage: 8 MIU
     Route: 058
     Dates: start: 20050901, end: 20071214
  3. BETASERON [Suspect]
     Dosage: 8 MIU EVERY OTHER DAY
     Route: 058
     Dates: start: 20080108
  4. BETASERON [Suspect]
     Route: 058
     Dates: start: 20080628
  5. BETASERON [Suspect]
     Dosage: 8 MIU
     Dates: end: 20090406
  6. PREDNISONE [Concomitant]
     Indication: DRUG USE FOR UNKNOWN INDICATION
     Dates: start: 19951101, end: 20080701
  7. PREDNISONE [Concomitant]
     Dates: start: 20080701
  8. BACLOFEN [Concomitant]
     Indication: DRUG USE FOR UNKNOWN INDICATION
     Dates: start: 20050801
  9. MECLIZINE [Concomitant]
     Indication: DRUG USE FOR UNKNOWN INDICATION
     Dates: start: 20050801
  10. TOLTERODINE [Concomitant]
     Indication: DRUG USE FOR UNKNOWN INDICATION
  11. NATALIZUMAB [Concomitant]
     Indication: DRUG USE FOR UNKNOWN INDICATION

REACTIONS (8)
  - ABDOMINAL TENDERNESS [None]
  - ALOPECIA [None]
  - BACTERIAL INFECTION [None]
  - CONSTIPATION [None]
  - GAIT DISTURBANCE [None]
  - INJECTION SITE ABSCESS [None]
  - MEMORY IMPAIRMENT [None]
  - MULTIPLE SCLEROSIS RELAPSE [None]
